FAERS Safety Report 9792673 (Version 1)
Quarter: 2014Q1

REPORT INFORMATION
  Report Type: Spontaneous
  Country: US (occurrence: US)
  Receive Date: 20140102
  Receipt Date: 20140102
  Transmission Date: 20141002
  Serious: No
  Sender: FDA-Public Use
  Company Number: US-SA-2013SA103322

PATIENT
  Age: 40 Year
  Sex: Female
  Weight: 79 kg

DRUGS (4)
  1. AUBAGIO [Suspect]
     Route: 048
  2. VITAMIN D [Concomitant]
     Dosage: DOSE:400 UNIT(S)
     Route: 065
  3. CYMBALTA [Concomitant]
     Route: 065
  4. OMEGA 3 [Concomitant]

REACTIONS (1)
  - Alopecia [Unknown]
